FAERS Safety Report 13795065 (Version 1)
Quarter: 2017Q3

REPORT INFORMATION
  Report Type: Spontaneous
  Country: GB (occurrence: GB)
  Receive Date: 20170726
  Receipt Date: 20170726
  Transmission Date: 20171127
  Serious: Yes (Other)
  Sender: FDA-Public Use
  Company Number: GB-MYLANLABS-2017M1043095

PATIENT

DRUGS (6)
  1. BISOPROLOL MYLAN [Suspect]
     Active Substance: BISOPROLOL
     Indication: HEART RATE INCREASED
     Route: 048
     Dates: start: 20170629, end: 20170630
  2. ATORVASTATIN [Concomitant]
     Active Substance: ATORVASTATIN
  3. MILPHARM BISOPROLOL [Concomitant]
  4. RAMIPRIL. [Concomitant]
     Active Substance: RAMIPRIL
  5. XARELTO [Concomitant]
     Active Substance: RIVAROXABAN
  6. SUPRALIP [Concomitant]
     Active Substance: FENOFIBRATE

REACTIONS (4)
  - Dyspnoea [Recovered/Resolved]
  - Fatigue [Recovered/Resolved]
  - Heart rate decreased [Recovered/Resolved]
  - Product substitution issue [Unknown]

NARRATIVE: CASE EVENT DATE: 20170629
